FAERS Safety Report 6190088-2 (Version None)
Quarter: 2009Q2

REPORT INFORMATION
  Report Type: 
  Country: None (occurrence: None)
  Receive Date: 20090513
  Receipt Date: 20090513
  Transmission Date: 20091009
  Serious: No
  Sender: FDA-Public Use
  Company Number: None

PATIENT
  Age: 59 Year
  Sex: Female
  Weight: 77.1115 kg

DRUGS (1)
  1. PLAQUENIL [Suspect]
     Indication: RHEUMATOID ARTHRITIS
     Dosage: 200MG 2XDAILY ORAL
     Route: 048
     Dates: start: 20090404, end: 20090420

REACTIONS (4)
  - ALOPECIA [None]
  - BLISTER [None]
  - HYPERSENSITIVITY [None]
  - RASH PRURITIC [None]
